FAERS Safety Report 9279203 (Version 3)
Quarter: 2014Q1

REPORT INFORMATION
  Report Type: Spontaneous
  Country: US (occurrence: US)
  Receive Date: 20130508
  Receipt Date: 20140207
  Transmission Date: 20141002
  Serious: Yes (Death, Other)
  Sender: FDA-Public Use
  Company Number: US-PFIZER INC-2013139823

PATIENT
  Age: 50 Year
  Sex: Female

DRUGS (4)
  1. REVATIO [Suspect]
     Indication: PULMONARY HYPERTENSION
     Dosage: 20 MG, 3X/DAY
     Route: 048
     Dates: start: 201208, end: 201303
  2. DOBUTAMINE [Concomitant]
     Indication: RENAL FAILURE CHRONIC
     Dosage: UNK
     Dates: start: 20130220, end: 20130427
  3. DOBUTAMINE [Concomitant]
     Indication: HYPOTENSION
  4. DOBUTAMINE [Concomitant]
     Indication: CARDIOMYOPATHY

REACTIONS (5)
  - Pulmonary hypertension [Fatal]
  - Cardiomyopathy [Fatal]
  - Hypotension [Unknown]
  - Mental disorder [Unknown]
  - Drug ineffective [Unknown]
